FAERS Safety Report 18555800 (Version 1)
Quarter: 2020Q4

REPORT INFORMATION
  Report Type: Report from Study
  Country: CO (occurrence: CO)
  Receive Date: 20201127
  Receipt Date: 20201127
  Transmission Date: 20210114
  Serious: Yes (Hospitalization)
  Sender: FDA-Public Use
  Company Number: CO-JNJFOC-A-CH2019-198039

PATIENT
  Age: 66 Year
  Sex: Female
  Weight: 85 kg

DRUGS (6)
  1. MACITENTAN [Suspect]
     Active Substance: MACITENTAN
     Indication: PULMONARY ARTERIAL HYPERTENSION
     Dosage: 10 MG, QD
     Route: 048
     Dates: start: 20150106, end: 202003
  2. MACITENTAN [Suspect]
     Active Substance: MACITENTAN
     Dosage: 10 MG, QD
     Route: 048
     Dates: start: 20200321
  3. LEVOTIROXIN [Concomitant]
     Active Substance: LEVOTHYROXINE SODIUM
  4. MACITENTAN [Suspect]
     Active Substance: MACITENTAN
     Dosage: 10 MG, QD
     Route: 048
     Dates: start: 20200820
  5. MACITENTAN [Suspect]
     Active Substance: MACITENTAN
     Dosage: 10 MG, QD
     Route: 048
     Dates: start: 20200505
  6. RIVAROXABAN [Concomitant]
     Active Substance: RIVAROXABAN

REACTIONS (22)
  - Hypertension [Not Recovered/Not Resolved]
  - Bone pain [Unknown]
  - Chest discomfort [Not Recovered/Not Resolved]
  - Cardiac disorder [Not Recovered/Not Resolved]
  - Swelling [Recovering/Resolving]
  - Malaise [Not Recovered/Not Resolved]
  - Chest pain [Not Recovered/Not Resolved]
  - Cardiomegaly [Recovering/Resolving]
  - Pleural effusion [Recovering/Resolving]
  - Varicose vein [Not Recovered/Not Resolved]
  - Tendon pain [Unknown]
  - Muscle strain [Unknown]
  - Choking sensation [Not Recovered/Not Resolved]
  - Lung disorder [Not Recovered/Not Resolved]
  - Cardiac failure [Recovering/Resolving]
  - Throat tightness [Not Recovered/Not Resolved]
  - Cardiac dysfunction [Not Recovered/Not Resolved]
  - Musculoskeletal disorder [Unknown]
  - Pruritus [Unknown]
  - Cyanosis [Not Recovered/Not Resolved]
  - Fatigue [Unknown]
  - Headache [Unknown]

NARRATIVE: CASE EVENT DATE: 2015
